FAERS Safety Report 25196711 (Version 1)
Quarter: 2025Q2

REPORT INFORMATION
  Report Type: Spontaneous
  Country: JP (occurrence: JP)
  Receive Date: 20250415
  Receipt Date: 20250415
  Transmission Date: 20250717
  Serious: Yes (Hospitalization, Other)
  Sender: EXELA PHARMA SCIENCES
  Company Number: JP-EXELAPHARMA-2025EXLA00041

PATIENT
  Age: 48 Year
  Sex: Male

DRUGS (7)
  1. TRANEXAMIC ACID [Suspect]
     Active Substance: TRANEXAMIC ACID
     Indication: Haemostasis
  2. NOREPINEPHRINE BITARTRATE [Concomitant]
     Active Substance: NOREPINEPHRINE BITARTRATE
  3. Red cell concentrate (RCC) transfusion [Concomitant]
  4. Platelet concentrate (PC) transfusion [Concomitant]
  5. CEFAZOLIN SODIUM [Concomitant]
     Active Substance: CEFAZOLIN SODIUM
  6. MEROPENEM [Concomitant]
     Active Substance: MEROPENEM
  7. CEFTRIAXONE SODIUM [Concomitant]
     Active Substance: CEFTRIAXONE SODIUM

REACTIONS (4)
  - Haemorrhage [Not Recovered/Not Resolved]
  - Haemothorax [Recovered/Resolved]
  - Condition aggravated [Recovered/Resolved]
  - Off label use [Unknown]
